FAERS Safety Report 10570808 (Version 1)
Quarter: 2014Q4

REPORT INFORMATION
  Report Type: Spontaneous
  Country: US (occurrence: None)
  Receive Date: 20141106
  Receipt Date: 20141106
  Transmission Date: 20150529
  Serious: No
  Sender: FDA-Public Use
  Company Number: None

PATIENT
  Age: 64 Year
  Sex: Female

DRUGS (11)
  1. PROLIA [Concomitant]
     Active Substance: DENOSUMAB
  2. OMEPRAZOLE. [Concomitant]
     Active Substance: OMEPRAZOLE
  3. TECFIDERA [Suspect]
     Active Substance: DIMETHYL FUMARATE
     Indication: MULTIPLE SCLEROSIS
     Dosage: 1 CAPSULE, BID, ORAL
     Route: 048
     Dates: start: 20140905, end: 20141105
  4. DIAZEPAM. [Concomitant]
     Active Substance: DIAZEPAM
  5. HUMALOG [Concomitant]
     Active Substance: INSULIN LISPRO
  6. BACLOFEN. [Concomitant]
     Active Substance: BACLOFEN
  7. LANTUS [Concomitant]
     Active Substance: INSULIN GLARGINE
  8. LETROZOLE. [Concomitant]
     Active Substance: LETROZOLE
  9. AMITIZA [Concomitant]
     Active Substance: LUBIPROSTONE
  10. IRON [Concomitant]
     Active Substance: IRON
  11. VENLAFAXINE [Concomitant]
     Active Substance: VENLAFAXINE HYDROCHLORIDE

REACTIONS (1)
  - Diarrhoea [None]

NARRATIVE: CASE EVENT DATE: 20141104
